FAERS Safety Report 25106124 (Version 4)
Quarter: 2025Q2

REPORT INFORMATION
  Report Type: Spontaneous
  Country: GR (occurrence: GR)
  Receive Date: 20250321
  Receipt Date: 20250507
  Transmission Date: 20250717
  Serious: No
  Sender: PFIZER
  Company Number: GR-PFIZER INC-PV202500032926

PATIENT
  Age: 4 Year
  Sex: Male
  Weight: 18 kg

DRUGS (1)
  1. GENOTROPIN [Suspect]
     Active Substance: SOMATROPIN
     Indication: Dwarfism
     Dosage: 0.7 MG/DAY 6 DAYS, 1 DAY OFF (SATURDAY)
     Route: 058
     Dates: start: 20240827

REACTIONS (3)
  - Drug dose omission by device [Unknown]
  - Device use error [Unknown]
  - Device mechanical issue [Unknown]

NARRATIVE: CASE EVENT DATE: 20250315
